FAERS Safety Report 19042793 (Version 1)
Quarter: 2021Q1

REPORT INFORMATION
  Report Type: Spontaneous
  Country: US (occurrence: US)
  Receive Date: 20210322
  Receipt Date: 20210322
  Transmission Date: 20210420
  Serious: No
  Sender: FDA-Public Use
  Company Number: None

PATIENT
  Sex: Female

DRUGS (1)
  1. REPATHA [Suspect]
     Active Substance: EVOLOCUMAB

REACTIONS (5)
  - Pain in extremity [None]
  - Swelling face [None]
  - Epistaxis [None]
  - Urinary retention [None]
  - Hypotension [None]

NARRATIVE: CASE EVENT DATE: 20210201
